FAERS Safety Report 5424653-4 (Version None)
Quarter: 2007Q3

REPORT INFORMATION
  Report Type: 
  Country: None (occurrence: None)
  Receive Date: 20070824
  Receipt Date: 20070817
  Transmission Date: 20080115
  Serious: Yes (Other)
  Sender: FDA-Public Use
  Company Number: PHBS2006BE16044

PATIENT
  Sex: Male

DRUGS (4)
  1. ZOMETA [Suspect]
     Indication: METASTASES TO BONE
     Dosage: EVERY 3 TO 4 WEEKS
     Dates: start: 20040709, end: 20050916
  2. CISPLATIN [Concomitant]
  3. PARAPLATIN [Concomitant]
  4. GEMZAR [Concomitant]

REACTIONS (1)
  - OSTEONECROSIS [None]
